FAERS Safety Report 11891222 (Version 1)
Quarter: 2016Q1

REPORT INFORMATION
  Report Type: Spontaneous
  Country: US (occurrence: None)
  Receive Date: 20160105
  Receipt Date: 20160105
  Transmission Date: 20160526
  Serious: Yes (Hospitalization)
  Sender: FDA-Public Use
  Company Number: None

PATIENT
  Age: 27 Year
  Sex: Female
  Weight: 97.8 kg

DRUGS (1)
  1. RACEPINEPHRINE [Suspect]
     Active Substance: RACEPINEPHRINE
     Route: 055

REACTIONS (3)
  - Lip blister [None]
  - Lip swelling [None]
  - Stridor [None]

NARRATIVE: CASE EVENT DATE: 20141113
